FAERS Safety Report 16840204 (Version 1)
Quarter: 2019Q3

REPORT INFORMATION
  Report Type: Spontaneous
  Country: IT (occurrence: IT)
  Receive Date: 20190923
  Receipt Date: 20190923
  Transmission Date: 20191005
  Serious: Yes (Hospitalization, Other)
  Sender: FDA-Public Use
  Company Number: IT-PFIZER INC-2019404826

PATIENT
  Age: 64 Year
  Sex: Female
  Weight: 80 kg

DRUGS (2)
  1. DALACIN C [Suspect]
     Active Substance: CLINDAMYCIN PHOSPHATE
     Indication: INFECTION
     Dosage: 900 MG, 1X/DAY
     Route: 048
     Dates: start: 20190815, end: 20190816
  2. AMOXICILLIN/CLAVULANIC ACID MYLAN [Suspect]
     Active Substance: AMOXICILLIN\CLAVULANIC ACID
     Indication: INFECTION
     Dosage: 2 G, 1X/DAY
     Route: 048
     Dates: start: 20190811, end: 20190818

REACTIONS (3)
  - Acute generalised exanthematous pustulosis [Unknown]
  - Rash pustular [Unknown]
  - Pyrexia [Unknown]

NARRATIVE: CASE EVENT DATE: 20190816
